FAERS Safety Report 15093978 (Version 1)
Quarter: 2018Q3

REPORT INFORMATION
  Report Type: Other
  Country: CA (occurrence: CA)
  Receive Date: 20180629
  Receipt Date: 20180629
  Transmission Date: 20181010
  Serious: Yes (Other)
  Sender: FDA-Public Use
  Company Number: CA-AYTU BIOSCIENCES, INC.-2018AYT000115

PATIENT

DRUGS (1)
  1. NATESTO [Suspect]
     Active Substance: TESTOSTERONE
     Indication: ANDROGEN REPLACEMENT THERAPY

REACTIONS (1)
  - Aortic aneurysm [Unknown]
